FAERS Safety Report 19766332 (Version 1)
Quarter: 2021Q3

REPORT INFORMATION
  Report Type: Spontaneous
  Country: CA (occurrence: CA)
  Receive Date: 20210830
  Receipt Date: 20210830
  Transmission Date: 20211014
  Serious: Yes (Disabling)
  Sender: FDA-Public Use
  Company Number: None

PATIENT
  Age: 33 Year
  Sex: Female
  Weight: 63.5 kg

DRUGS (1)
  1. MIRENA [Suspect]
     Active Substance: LEVONORGESTREL

REACTIONS (13)
  - Breast tenderness [None]
  - Fatigue [None]
  - Heavy menstrual bleeding [None]
  - Depressed mood [None]
  - Anxiety [None]
  - Abdominal pain [None]
  - Pain [None]
  - Depression [None]
  - Muscle spasms [None]
  - Acne [None]
  - Decreased interest [None]
  - Feeling abnormal [None]
  - Libido decreased [None]

NARRATIVE: CASE EVENT DATE: 20210829
